FAERS Safety Report 12573404 (Version 1)
Quarter: 2016Q3

REPORT INFORMATION
  Report Type: Spontaneous
  Country: US (occurrence: None)
  Receive Date: 20160719
  Receipt Date: 20160719
  Transmission Date: 20161109
  Serious: No
  Sender: FDA-Public Use
  Company Number: None

PATIENT
  Age: 86 Year
  Sex: Female
  Weight: 52.16 kg

DRUGS (7)
  1. ATENOLOL. [Concomitant]
     Active Substance: ATENOLOL
  2. ADVIL [Concomitant]
     Active Substance: IBUPROFEN
  3. LOSARTAN. [Concomitant]
     Active Substance: LOSARTAN
  4. VOLTAREN [Suspect]
     Active Substance: DICLOFENAC SODIUM
     Indication: ARTHRITIS
     Dosage: 1%  2G OR 4G  4 TIMES A DAY NOT OVER 32G PER DAY ?ON THE SKIN ONLY ONE TIME ON RIGHT SHOULDER
     Dates: start: 20160404, end: 20160404
  5. METFORMIN HCL [Concomitant]
     Active Substance: METFORMIN HYDROCHLORIDE
  6. ZANTAC [Concomitant]
     Active Substance: RANITIDINE HYDROCHLORIDE
  7. HCTZ [Concomitant]
     Active Substance: HYDROCHLOROTHIAZIDE

REACTIONS (5)
  - Rectal haemorrhage [None]
  - Blood urine present [None]
  - Bacterial infection [None]
  - Gastrointestinal haemorrhage [None]
  - Urinary tract infection [None]
